FAERS Safety Report 8897022 (Version 1)
Quarter: 2012Q4

REPORT INFORMATION
  Report Type: Spontaneous
  Country: US (occurrence: None)
  Receive Date: 20121031
  Receipt Date: 20121031
  Transmission Date: 20130627
  Serious: Yes (Death)
  Sender: FDA-Public Use
  Company Number: 2012MA012500

PATIENT
  Age: 69 Year
  Sex: Female

DRUGS (4)
  1. LEVETIRACETAM [Suspect]
     Indication: CONVULSION PROPHYLAXIS
  2. DIPHENHYDRAMINE [Concomitant]
  3. METHADONE [Concomitant]
  4. OXYCODONE [Concomitant]

REACTIONS (3)
  - Face injury [None]
  - Accidental death [None]
  - Toxicity to various agents [None]
